FAERS Safety Report 14596808 (Version 1)
Quarter: 2018Q1

REPORT INFORMATION
  Report Type: Spontaneous
  Country: FR (occurrence: FR)
  Receive Date: 20180304
  Receipt Date: 20180304
  Transmission Date: 20180509
  Serious: Yes (Life-Threatening, Hospitalization)
  Sender: FDA-Public Use
  Company Number: FR-009507513-1802FRA011700

PATIENT
  Age: 50 Year
  Sex: Female
  Weight: 78 kg

DRUGS (9)
  1. METHYLPREDNISOLONE. [Concomitant]
     Active Substance: METHYLPREDNISOLONE
  2. PROPOFOL. [Suspect]
     Active Substance: PROPOFOL
     Indication: INDUCTION OF ANAESTHESIA
     Dosage: 200 MG, UNKNOWN
     Route: 042
     Dates: start: 20180205, end: 20180205
  3. ATROPINE. [Concomitant]
     Active Substance: ATROPINE
  4. ESMERON [Suspect]
     Active Substance: ROCURONIUM BROMIDE
     Indication: INDUCTION OF ANAESTHESIA
     Dosage: 50 MG, UNKNOWN
     Route: 042
     Dates: start: 20180205, end: 20180205
  5. EPINEPHRINE. [Concomitant]
     Active Substance: EPINEPHRINE
  6. SUFENTANIL CITRATE. [Suspect]
     Active Substance: SUFENTANIL CITRATE
     Indication: INDUCTION OF ANAESTHESIA
     Dosage: 20 MICROGRAM, UNKNOWN
     Route: 042
     Dates: start: 20180205, end: 20180205
  7. ONGLYZA [Concomitant]
     Active Substance: SAXAGLIPTIN HYDROCHLORIDE
  8. STAGID [Concomitant]
     Active Substance: METFORMIN PAMOATE
  9. EPHEDRINE. [Concomitant]
     Active Substance: EPHEDRINE

REACTIONS (2)
  - Cardiac arrest [Recovered/Resolved]
  - Anaphylactic shock [Recovered/Resolved]

NARRATIVE: CASE EVENT DATE: 20180205
